FAERS Safety Report 5627105-1 (Version None)
Quarter: 2008Q1

REPORT INFORMATION
  Report Type: 
  Country: None (occurrence: None)
  Receive Date: 20080129
  Receipt Date: 20070629
  Transmission Date: 20080703
  Serious: Yes (Hospitalization)
  Sender: FDA-Public Use
  Company Number: 8025163

PATIENT
  Age: 24 Month
  Sex: Male

DRUGS (2)
  1. KEPPRA [Suspect]
     Dosage: 100 MG 2/D PO
     Route: 048
  2. CLONAZEPAM [Concomitant]

REACTIONS (1)
  - PANCREATITIS [None]
